FAERS Safety Report 9456133 (Version 1)
Quarter: 2013Q3

REPORT INFORMATION
  Report Type: Spontaneous
  Country: US (occurrence: None)
  Receive Date: 20130812
  Receipt Date: 20130812
  Transmission Date: 20140515
  Serious: Yes (Death, Life-Threatening, Hospitalization)
  Sender: FDA-Public Use
  Company Number: None

PATIENT
  Age: 78 Year
  Sex: Male
  Weight: 92.7 kg

DRUGS (3)
  1. DABIGATRAN [Suspect]
     Indication: ATRIAL FIBRILLATION
     Dosage: 150 MG  BID  PO
     Route: 048
     Dates: start: 20130318, end: 20130506
  2. DABIGATRAN [Suspect]
     Dosage: 150 MG  BID  PO
     Route: 048
     Dates: start: 20130318, end: 20130506
  3. ANAGRELIDE [Suspect]
     Indication: POLYCYTHAEMIA VERA
     Dosage: 0.5 MG  BID  PO
     Route: 048
     Dates: start: 20130315, end: 20130506

REACTIONS (2)
  - Renal haemorrhage [None]
  - Infection [None]
